FAERS Safety Report 23267493 (Version 1)
Quarter: 2023Q4

REPORT INFORMATION
  Report Type: Spontaneous
  Country: US (occurrence: None)
  Receive Date: 20231205
  Receipt Date: 20231205
  Transmission Date: 20240109
  Serious: Yes (Other)
  Sender: FDA-Public Use
  Company Number: None

PATIENT
  Age: 45 Year
  Sex: Female
  Weight: 126 kg

DRUGS (10)
  1. PAXLOVID [Suspect]
     Active Substance: NIRMATRELVIR\RITONAVIR
     Indication: SARS-CoV-2 test positive
     Dates: start: 20231124, end: 20231129
  2. VITAMIN C [Concomitant]
     Active Substance: ASCORBIC ACID
  3. ZINC [Concomitant]
     Active Substance: PYRITHIONE ZINC\ZINC\ZINC CHLORIDE
  4. VITAMIN D3 [Concomitant]
     Active Substance: CHOLECALCIFEROL
  5. OMEGA 3 [Concomitant]
     Active Substance: CAPSAICIN
  6. nac [Concomitant]
  7. LYSINE [Concomitant]
     Active Substance: LYSINE
  8. MAGNESIUM [Concomitant]
     Active Substance: MAGNESIUM
  9. glycinate [Concomitant]
  10. HERBALS [Concomitant]
     Active Substance: HERBALS

REACTIONS (7)
  - Dizziness [None]
  - Dysgeusia [None]
  - Oropharyngeal pain [None]
  - Sinus disorder [None]
  - Pharyngeal disorder [None]
  - Nasopharyngitis [None]
  - SARS-CoV-2 test positive [None]

NARRATIVE: CASE EVENT DATE: 20231204
